FAERS Safety Report 26040846 (Version 1)
Quarter: 2025Q4

REPORT INFORMATION
  Report Type: Spontaneous
  Country: US (occurrence: None)
  Receive Date: 20251112
  Receipt Date: 20251112
  Transmission Date: 20260118
  Serious: No
  Sender: FDA-CTU
  Company Number: None

PATIENT
  Sex: Female

DRUGS (1)
  1. TERIPARATIDE [Suspect]
     Active Substance: TERIPARATIDE
     Indication: Senile osteoporosis
     Dosage: 20 UG MICROGRAM(S) DAILY SUBCUTANEOUS?
     Route: 058
     Dates: start: 20250702

REACTIONS (2)
  - Chest pain [None]
  - Therapy interrupted [None]
